FAERS Safety Report 8711684 (Version 2)
Quarter: 2012Q4

REPORT INFORMATION
  Report Type: Report from Study
  Country: DE (occurrence: DE)
  Receive Date: 20120807
  Receipt Date: 20120829
  Transmission Date: 20130627
  Serious: Yes (Other)
  Sender: FDA-Public Use
  Company Number: DE-ROCHE-1096249

PATIENT
  Age: 42 Year
  Sex: Female
  Weight: 67 kg

DRUGS (5)
  1. ROACTEMRA [Suspect]
     Indication: RHEUMATOID ARTHRITIS
     Dosage: Last dose prior to SAE on 18/Apr/2012
     Route: 042
     Dates: start: 20111123
  2. LEFLUNOMID [Concomitant]
     Indication: RHEUMATOID ARTHRITIS
     Dosage: last dose prior to SAE on 16/Jul/2012
     Route: 048
     Dates: start: 20110915
  3. PREDNISOLON [Concomitant]
     Indication: RHEUMATOID ARTHRITIS
     Dosage: last dose prior to SAE on 18/Apr/2012
     Route: 048
     Dates: start: 20111025
  4. FENOTEROL [Concomitant]
     Route: 048
  5. CHOLECALCIFEROL [Concomitant]
     Indication: OSTEOPOROSIS
     Dosage: Last dose prior to SAE on 18/Apr/2012
     Route: 048
     Dates: start: 20110801

REACTIONS (2)
  - Gamma-glutamyltransferase increased [Recovered/Resolved]
  - Bilirubin conjugated increased [Recovered/Resolved]
